FAERS Safety Report 13497284 (Version 9)
Quarter: 2018Q3

REPORT INFORMATION
  Report Type: Report from Study
  Country: US (occurrence: US)
  Receive Date: 20170428
  Receipt Date: 20180910
  Transmission Date: 20181010
  Serious: Yes (Hospitalization, Other)
  Sender: FDA-Public Use
  Company Number: US-SA-2016SA189288

PATIENT
  Age: 35 Year
  Sex: Female

DRUGS (5)
  1. EFFEXOR [Suspect]
     Active Substance: VENLAFAXINE HYDROCHLORIDE
     Dosage: UNK UNK,UNK
     Route: 065
  2. LITHIUM CARBONATE. [Suspect]
     Active Substance: LITHIUM CARBONATE
     Dosage: UNK UNK,UNK
     Route: 065
  3. AGALSIDASE BETA [Suspect]
     Active Substance: AGALSIDASE BETA
     Dosage: DOSE: 95; FREQUENCY: Q2
     Route: 041
     Dates: start: 20170808
  4. ZOFRAN [ONDANSETRON] [Concomitant]
     Indication: PREMEDICATION
     Dosage: UNK UNK,UNK
     Route: 065
     Dates: start: 20161005
  5. AGALSIDASE BETA [Suspect]
     Active Substance: AGALSIDASE BETA
     Indication: FABRY^S DISEASE
     Dosage: 95MG
     Route: 041
     Dates: start: 20160204

REACTIONS (35)
  - Arrhythmia [Recovering/Resolving]
  - Dry mouth [Not Recovered/Not Resolved]
  - Diarrhoea [Recovering/Resolving]
  - Condition aggravated [Recovering/Resolving]
  - Hyperintensity in brain deep nuclei [Not Recovered/Not Resolved]
  - Arthralgia [Not Recovered/Not Resolved]
  - Breast cancer recurrent [Unknown]
  - Patellofemoral pain syndrome [Recovering/Resolving]
  - Arthralgia [Recovering/Resolving]
  - Confusional state [Not Recovered/Not Resolved]
  - Catheter placement [Recovering/Resolving]
  - Lymphoedema [Recovering/Resolving]
  - Angiokeratoma [Recovering/Resolving]
  - Full blood count decreased [Unknown]
  - Dry eye [Not Recovered/Not Resolved]
  - Gastrointestinal disorder [Recovering/Resolving]
  - Poor venous access [Unknown]
  - Appetite disorder [Not Recovered/Not Resolved]
  - Malaise [Not Recovered/Not Resolved]
  - Lower respiratory tract infection [Recovering/Resolving]
  - Condition aggravated [Not Recovered/Not Resolved]
  - Asthenia [Recovering/Resolving]
  - Malaise [Recovering/Resolving]
  - Metastases to liver [Not Recovered/Not Resolved]
  - Artificial menopause [Recovering/Resolving]
  - Vomiting [Recovering/Resolving]
  - Uterine disorder [Recovering/Resolving]
  - Hippocampal sclerosis [Not Recovered/Not Resolved]
  - Joint range of motion decreased [Unknown]
  - Dyspnoea [Recovering/Resolving]
  - Cerebral disorder [Not Recovered/Not Resolved]
  - Sjogren^s syndrome [Not Recovered/Not Resolved]
  - Amnesia [Not Recovered/Not Resolved]
  - Irritability [Not Recovered/Not Resolved]
  - Feeling abnormal [Not Recovered/Not Resolved]

NARRATIVE: CASE EVENT DATE: 2016
